FAERS Safety Report 5140680-9 (Version None)
Quarter: 2006Q4

REPORT INFORMATION
  Report Type: 
  Country: None (occurrence: None)
  Receive Date: 20061025
  Receipt Date: 20061012
  Transmission Date: 20070319
  Serious: Yes (Hospitalization, Other)
  Sender: FDA-Public Use
  Company Number: 2006105068

PATIENT
  Age: 77 Year
  Sex: Male

DRUGS (13)
  1. EPIRUBICIN [Suspect]
     Indication: HEPATIC NEOPLASM MALIGNANT
     Dosage: 30 MG (1 IN 1 D), INTRA-ARTERIAL
     Route: 013
     Dates: start: 20060105, end: 20060822
  2. LIPIODOL ULTRA-FLUID (ETHIODIZED OIL) [Suspect]
     Indication: HEPATIC NEOPLASM MALIGNANT
     Dosage: 2.9 ML (1 IN 1 D), INTRA-ARTERIAL
     Route: 013
     Dates: start: 20060105, end: 20060822
  3. DEXTROMETHORPHAN HYDROBROMIDE [Concomitant]
  4. MUCODYNE (CARBOCISTEINE) [Concomitant]
  5. USRO (URSODEOXYCHOLIC ACID) [Concomitant]
  6. LEVOTHYROXINE SODIUM [Concomitant]
  7. BLOPRESS (CANDESARTAN CILEXETIL) [Concomitant]
  8. BASEN (VOGLIBOSE) [Concomitant]
  9. NIKORANMART (NICORANDIL) [Concomitant]
  10. NOZULENE (SODIUM GUALENATE) [Concomitant]
  11. FAMOTIDINE [Concomitant]
  12. MAGNESIUM OXIDE (MAGNESIUM OXIDE) [Concomitant]
  13. GELFOAM [Concomitant]

REACTIONS (5)
  - ALVEOLITIS ALLERGIC [None]
  - PLEURAL EFFUSION [None]
  - PNEUMONIA [None]
  - PROCEDURAL COMPLICATION [None]
  - VASCULAR ANOMALY [None]
